FAERS Safety Report 6034260-0 (Version None)
Quarter: 2009Q1

REPORT INFORMATION
  Report Type: 
  Country: None (occurrence: None)
  Receive Date: 20090112
  Receipt Date: 20090105
  Transmission Date: 20090719
  Serious: Yes (Other)
  Sender: FDA-Public Use
  Company Number: US-ROCHE-605949

PATIENT
  Age: 72 Year
  Sex: Female

DRUGS (3)
  1. BONIVA [Suspect]
     Indication: OSTEOPENIA
     Route: 065
     Dates: start: 20081101
  2. LISINOPRIL [Concomitant]
     Dosage: DRUG: LOSINOPRIL
  3. HYDROCHLOROTHIAZIDE [Concomitant]
     Dosage: DRUG: HYDROCHLOROTHYAZIDE

REACTIONS (4)
  - ABDOMINAL PAIN UPPER [None]
  - DYSPEPSIA [None]
  - ERUCTATION [None]
  - SPINAL DISORDER [None]
